FAERS Safety Report 7374373-4 (Version None)
Quarter: 2011Q1

REPORT INFORMATION
  Report Type: 
  Country: None (occurrence: None)
  Receive Date: 20110325
  Receipt Date: 20110323
  Transmission Date: 20110831
  Serious: Yes (Other)
  Sender: FDA-Public Use
  Company Number: JP-PFIZER INC-2011027368

PATIENT
  Age: 81 Year
  Sex: Male
  Weight: 56 kg

DRUGS (8)
  1. LYRICA [Suspect]
     Indication: POST HERPETIC NEURALGIA
     Dosage: 75 MG, 2X/DAY
     Route: 048
     Dates: start: 20110117, end: 20110118
  2. AMARYL [Concomitant]
     Indication: TYPE 2 DIABETES MELLITUS
     Dosage: 1 MG, 1X/DAY
     Route: 048
     Dates: start: 20080119
  3. ARTIST [Concomitant]
     Indication: HYPERTENSION
     Dosage: 10 MG, 1X/DAY
     Route: 048
     Dates: start: 20080119
  4. ASPIRIN [Concomitant]
     Indication: CEREBROVASCULAR DISORDER
     Dosage: 100 MG, 1X/DAY
     Route: 048
     Dates: start: 20080119
  5. VALTREX [Concomitant]
     Indication: HERPES ZOSTER
     Dosage: 1000 MG, 2X/DAY
     Route: 048
     Dates: start: 20110109, end: 20110115
  6. PLAVIX [Concomitant]
     Indication: CEREBROVASCULAR DISORDER
     Dosage: 75 MG, 1X/DAY
     Route: 048
     Dates: start: 20090413
  7. OMEPRAZON [Concomitant]
     Indication: PROPHYLAXIS AGAINST GASTROINTESTINAL ULCER
     Dosage: 10 MG, 1X/DAY
     Route: 048
     Dates: start: 20080119
  8. MAGNESIUM OXIDE [Concomitant]
     Indication: CONSTIPATION
     Dosage: 250 MG, 2X/DAY
     Route: 048
     Dates: start: 20080119

REACTIONS (3)
  - SOMNOLENCE [None]
  - URINARY RETENTION [None]
  - PNEUMONIA [None]
